FAERS Safety Report 16406459 (Version 2)
Quarter: 2019Q2

REPORT INFORMATION
  Report Type: Report from Study
  Country: JP (occurrence: JP)
  Receive Date: 20190607
  Receipt Date: 20190612
  Transmission Date: 20190711
  Serious: Yes (Hospitalization, Other)
  Sender: FDA-Public Use
  Company Number: JP-BRISTOL-MYERS SQUIBB COMPANY-BMS-2019-054933

PATIENT
  Age: 66 Year
  Sex: Male
  Weight: 79.3 kg

DRUGS (9)
  1. TAS 116 [Suspect]
     Active Substance: TAS-116
     Indication: NEOPLASM MALIGNANT
     Dosage: 160 MILIGRAM QD
     Route: 065
     Dates: start: 20190416
  2. LYRICA [Concomitant]
     Active Substance: PREGABALIN
     Indication: HERNIA
     Dosage: 150 MILLIGRAM, Q12H
     Route: 048
  3. CALONAL [Concomitant]
     Active Substance: ACETAMINOPHEN
     Indication: TUMOUR PAIN
     Dosage: 2000 MILLIGRAM, Q6H
     Route: 048
     Dates: start: 20190423
  4. NIVOLUMAB [Suspect]
     Active Substance: NIVOLUMAB
     Indication: NEOPLASM MALIGNANT
     Dosage: 3 MICROGRAM/KILOGRAM, Q2WK
     Route: 042
     Dates: start: 20190416
  5. NARURAPID [Concomitant]
     Active Substance: HYDROMORPHONE HYDROCHLORIDE
     Indication: TUMOUR PAIN
     Dosage: UNK
     Route: 048
     Dates: start: 20190514
  6. OXYCONTIN TR [Concomitant]
     Indication: TUMOUR PAIN
     Dosage: 100 MILLIGRAM, Q12H
     Route: 048
     Dates: start: 20190521
  7. SCOPOLIA EXTRACT [Concomitant]
     Active Substance: HERBALS
     Indication: DIARRHOEA
     Dosage: UNK
     Route: 048
     Dates: start: 20190416
  8. OLANZAPINE OD [Concomitant]
     Active Substance: OLANZAPINE
     Indication: PROPHYLAXIS
     Dosage: 5 MILLIGRAM, EVERY DAY
     Route: 048
     Dates: start: 20190416
  9. TRAVELMIN [CAFFEINE;DIPHENHYDRAMINE SALICYLATE] [Concomitant]
     Indication: NAUSEA
     Dosage: 3 DOSAGE FORM, Q8H
     Route: 048
     Dates: start: 20190528

REACTIONS (1)
  - Encephalitis [Not Recovered/Not Resolved]

NARRATIVE: CASE EVENT DATE: 20190530
